FAERS Safety Report 7488667-5 (Version None)
Quarter: 2011Q2

REPORT INFORMATION
  Report Type: 
  Country: None (occurrence: None)
  Receive Date: 20110518
  Receipt Date: 20110512
  Transmission Date: 20111010
  Serious: Yes (Hospitalization)
  Sender: FDA-Public Use
  Company Number: B0595748A

PATIENT
  Sex: Female
  Weight: 81.4 kg

DRUGS (4)
  1. LAPATINIB [Suspect]
     Indication: BREAST CANCER
     Dosage: 1500MG PER DAY
     Route: 048
     Dates: start: 20090819
  2. LOPERAMIDE [Concomitant]
     Route: 048
     Dates: start: 20090901
  3. PACLITAXEL [Suspect]
     Indication: BREAST CANCER
     Dosage: 80MGM2 WEEKLY
     Route: 042
     Dates: start: 20090819
  4. MOTILIUM [Concomitant]
     Dosage: 20MG AS REQUIRED
     Route: 048
     Dates: start: 20090828

REACTIONS (1)
  - BODY TEMPERATURE INCREASED [None]
